FAERS Safety Report 4503397-7 (Version None)
Quarter: 2004Q4

REPORT INFORMATION
  Report Type: 
  Country: None (occurrence: None)
  Receive Date: 20041117
  Receipt Date: 20041110
  Transmission Date: 20050328
  Serious: Yes (Other)
  Sender: FDA-Public Use
  Company Number: PHFR2004GB04039

PATIENT
  Sex: Female

DRUGS (2)
  1. LITHIUM [Suspect]
     Route: 065
  2. VOLTAREN [Suspect]
     Route: 065

REACTIONS (3)
  - DRUG INTERACTION [None]
  - RENAL IMPAIRMENT [None]
  - THERAPEUTIC AGENT TOXICITY [None]
